FAERS Safety Report 16788917 (Version 1)
Quarter: 2019Q3

REPORT INFORMATION
  Report Type: Report from Study
  Country: None (occurrence: US)
  Receive Date: 20190910
  Receipt Date: 20190910
  Transmission Date: 20191005
  Serious: Yes (Other)
  Sender: FDA-Public Use
  Company Number: US-ABBVIE-19K-163-2912033-00

PATIENT
  Age: 63 Year
  Sex: Male

DRUGS (1)
  1. HUMIRA [Suspect]
     Active Substance: ADALIMUMAB
     Indication: RHEUMATOID ARTHRITIS
     Dosage: 2005 OR 2006
     Route: 058
     Dates: start: 2005

REACTIONS (9)
  - Shoulder arthroplasty [Unknown]
  - Spinal fusion surgery [Unknown]
  - Hip arthroplasty [Unknown]
  - Joint swelling [Unknown]
  - Osteoarthritis [Unknown]
  - Spinal fusion surgery [Unknown]
  - Wrong technique in product usage process [Unknown]
  - Hip arthroplasty [Unknown]
  - Pain [Unknown]

NARRATIVE: CASE EVENT DATE: 2005
